FAERS Safety Report 6788012-4 (Version None)
Quarter: 2010Q2

REPORT INFORMATION
  Report Type: 
  Country: None (occurrence: None)
  Receive Date: 20100623
  Receipt Date: 20071125
  Transmission Date: 20101027
  Serious: No
  Sender: FDA-Public Use
  Company Number: US-PFIZER INC-2007099532

PATIENT
  Sex: Female

DRUGS (2)
  1. NICOTROL [Suspect]
  2. NICOTROL [Suspect]

REACTIONS (6)
  - COUGH [None]
  - EMOTIONAL DISORDER [None]
  - HICCUPS [None]
  - LACRIMATION INCREASED [None]
  - ORAL DISCOMFORT [None]
  - RHINORRHOEA [None]
